FAERS Safety Report 16024855 (Version 2)
Quarter: 2019Q3

REPORT INFORMATION
  Report Type: Spontaneous
  Country: US (occurrence: US)
  Receive Date: 20190301
  Receipt Date: 20190701
  Transmission Date: 20191004
  Serious: Yes (Other)
  Sender: FDA-Public Use
  Company Number: US-ASTRAZENECA-2019SE30572

PATIENT
  Age: 24146 Day
  Sex: Male
  Weight: 88.5 kg

DRUGS (27)
  1. PANTOPRAZOLE [Suspect]
     Active Substance: PANTOPRAZOLE
     Indication: GASTROOESOPHAGEAL REFLUX DISEASE
     Route: 065
     Dates: start: 20170308, end: 20170911
  2. MONTELUKAST [Concomitant]
     Active Substance: MONTELUKAST SODIUM
  3. NOVOLOG [Concomitant]
     Active Substance: INSULIN ASPART
  4. NEXIUM [Suspect]
     Active Substance: ESOMEPRAZOLE MAGNESIUM
     Indication: GASTROOESOPHAGEAL REFLUX DISEASE
     Route: 048
     Dates: start: 20040308, end: 20151029
  5. LORTAB [Concomitant]
     Active Substance: ACETAMINOPHEN\HYDROCODONE BITARTRATE
  6. NEXIUM [Suspect]
     Active Substance: ESOMEPRAZOLE MAGNESIUM
     Indication: GASTROOESOPHAGEAL REFLUX DISEASE
     Dosage: ESOMEPRAZOLE
     Route: 065
     Dates: start: 20160128, end: 20170302
  7. OMEPRAZOLE. [Suspect]
     Active Substance: OMEPRAZOLE
     Indication: GASTROOESOPHAGEAL REFLUX DISEASE
     Route: 065
     Dates: start: 20060906, end: 20090628
  8. METFORMIN [Concomitant]
     Active Substance: METFORMIN HYDROCHLORIDE
  9. FIORICET [Concomitant]
     Active Substance: ACETAMINOPHEN\BUTALBITAL\CAFFEINE
  10. VASOTEC [Concomitant]
     Active Substance: ENALAPRIL MALEATE
  11. ASPIRIN. [Concomitant]
     Active Substance: ASPIRIN
  12. ACTOS [Concomitant]
     Active Substance: PIOGLITAZONE HYDROCHLORIDE
  13. PLAVIX [Concomitant]
     Active Substance: CLOPIDOGREL BISULFATE
  14. NITROSTAT [Concomitant]
     Active Substance: NITROGLYCERIN
  15. TOPROL XL [Concomitant]
     Active Substance: METOPROLOL SUCCINATE
  16. NEXIUM [Suspect]
     Active Substance: ESOMEPRAZOLE MAGNESIUM
     Indication: GASTROOESOPHAGEAL REFLUX DISEASE
     Route: 048
     Dates: start: 20040308, end: 20060905
  17. NEXIUM [Suspect]
     Active Substance: ESOMEPRAZOLE MAGNESIUM
     Indication: GASTROOESOPHAGEAL REFLUX DISEASE
     Route: 048
     Dates: start: 20090629, end: 20160127
  18. ATORVASTATIN [Concomitant]
     Active Substance: ATORVASTATIN
  19. TRAMADOL. [Concomitant]
     Active Substance: TRAMADOL
  20. GABAPENTIN. [Concomitant]
     Active Substance: GABAPENTIN
  21. ENALAPRIL MALEATE. [Concomitant]
     Active Substance: ENALAPRIL MALEATE
  22. NEXIUM [Suspect]
     Active Substance: ESOMEPRAZOLE MAGNESIUM
     Indication: GASTROOESOPHAGEAL REFLUX DISEASE
     Dosage: ESOMEPRAZOLE
     Route: 065
     Dates: start: 20170303
  23. METOPROLOL. [Concomitant]
     Active Substance: METOPROLOL
  24. TRIAMCINOLONE ACETONIDE. [Concomitant]
     Active Substance: TRIAMCINOLONE ACETONIDE
  25. LANTUS [Concomitant]
     Active Substance: INSULIN GLARGINE
  26. ZOCOR [Concomitant]
     Active Substance: SIMVASTATIN
  27. GLUCOPHAGE [Concomitant]
     Active Substance: METFORMIN HYDROCHLORIDE

REACTIONS (3)
  - Acute kidney injury [Unknown]
  - Chronic kidney disease [Not Recovered/Not Resolved]
  - Renal failure [Not Recovered/Not Resolved]

NARRATIVE: CASE EVENT DATE: 20150204
